FAERS Safety Report 10713468 (Version 1)
Quarter: 2015Q1

REPORT INFORMATION
  Report Type: Spontaneous
  Country: US (occurrence: None)
  Receive Date: 20150114
  Receipt Date: 20150114
  Transmission Date: 20150721
  Serious: Yes (Hospitalization)
  Sender: FDA-Public Use
  Company Number: None

PATIENT
  Age: 1 Year
  Sex: Female
  Weight: 8 kg

DRUGS (2)
  1. VANAHIST PD [Suspect]
     Active Substance: TRIPROLIDINE HYDROCHLORIDE
     Indication: NASOPHARYNGITIS
     Route: 048
     Dates: start: 20150106, end: 20150113
  2. VANAHIST PD [Suspect]
     Active Substance: TRIPROLIDINE HYDROCHLORIDE
     Indication: HYPERSENSITIVITY
     Route: 048
     Dates: start: 20150106, end: 20150113

REACTIONS (3)
  - Medication error [None]
  - Incorrect dose administered [None]
  - Accidental overdose [None]

NARRATIVE: CASE EVENT DATE: 20150113
